FAERS Safety Report 10043203 (Version 1)
Quarter: 2014Q1

REPORT INFORMATION
  Report Type: Spontaneous
  Country: US (occurrence: None)
  Receive Date: 20140327
  Receipt Date: 20140327
  Transmission Date: 20141002
  Serious: Yes (Disabling)
  Sender: FDA-Public Use
  Company Number: None

PATIENT
  Age: 79 Year
  Sex: Male
  Weight: 102.06 kg

DRUGS (1)
  1. ELIQUIS [Suspect]
     Indication: PRODUCT USED FOR UNKNOWN INDICATION
     Dosage: 1 PILL ONCE DAILY ORAL
     Route: 048
     Dates: start: 20140103, end: 20140214

REACTIONS (4)
  - Wheezing [None]
  - Asthma [None]
  - Dyspnoea [None]
  - Chest pain [None]
